FAERS Safety Report 10417854 (Version 5)
Quarter: 2014Q4

REPORT INFORMATION
  Report Type: Report from Study
  Country: JP (occurrence: JP)
  Receive Date: 20140829
  Receipt Date: 20141229
  Transmission Date: 20150528
  Serious: Yes (Hospitalization, Other)
  Sender: FDA-Public Use
  Company Number: JP-ASTELLAS-2011JP008045

PATIENT
  Age: 42 Year
  Sex: Female

DRUGS (70)
  1. PREDONINE [Suspect]
     Active Substance: PREDNISOLONE\PREDNISOLONE ACETATE\PREDNISOLONE SODIUM SUCCINATE
     Indication: LUPUS ENTERITIS
     Route: 048
     Dates: start: 20100701, end: 20101208
  2. PREDONINE [Suspect]
     Active Substance: PREDNISOLONE\PREDNISOLONE ACETATE\PREDNISOLONE SODIUM SUCCINATE
     Route: 048
     Dates: start: 20140321, end: 20140508
  3. PREMARIN [Suspect]
     Active Substance: ESTROGENS, CONJUGATED
     Indication: PROPHYLAXIS
     Route: 048
     Dates: start: 20110728, end: 20130613
  4. DIART [Suspect]
     Active Substance: AZOSEMIDE
     Indication: OEDEMA PERIPHERAL
     Route: 048
     Dates: start: 20130613, end: 20130718
  5. JUVELA N [Concomitant]
     Active Substance: TOCOPHERYL NICOTINATE, D-.ALPHA.
     Indication: PROPHYLAXIS
     Route: 048
     Dates: start: 20091224
  6. ZETIA [Concomitant]
     Active Substance: EZETIMIBE
     Indication: PRODUCT USED FOR UNKNOWN INDICATION
     Route: 048
     Dates: start: 20100225
  7. CLARITH [Concomitant]
     Active Substance: CLARITHROMYCIN
     Indication: NASOPHARYNGITIS
     Route: 048
     Dates: start: 20130110, end: 20130119
  8. LYRICA [Concomitant]
     Active Substance: PREGABALIN
     Indication: NEUROPATHY PERIPHERAL
     Route: 048
     Dates: start: 20120628, end: 20120725
  9. MUCOSTA [Concomitant]
     Active Substance: REBAMIPIDE
     Indication: GASTROENTERITIS
     Route: 048
     Dates: start: 20121115, end: 20121119
  10. TRAMCET [Concomitant]
     Active Substance: ACETAMINOPHEN\TRAMADOL
     Indication: LUPUS ENTERITIS
     Dosage: UNK UNK, UNKNOWN FREQ.
     Route: 048
     Dates: start: 20140317, end: 20140403
  11. CALONAL [Concomitant]
     Active Substance: ACETAMINOPHEN
     Indication: LUPUS ENTERITIS
     Route: 048
     Dates: start: 20140321, end: 20140403
  12. PREDONINE [Suspect]
     Active Substance: PREDNISOLONE\PREDNISOLONE ACETATE\PREDNISOLONE SODIUM SUCCINATE
     Indication: LUPUS NEPHRITIS
     Route: 048
     Dates: end: 20100630
  13. BAYASPIRIN [Suspect]
     Active Substance: ASPIRIN
     Indication: CARDIOLIPIN ANTIBODY POSITIVE
     Route: 048
     Dates: start: 20140509
  14. VITAMINS NOS [Suspect]
     Active Substance: VITAMINS
     Route: 048
     Dates: start: 20120824, end: 20121115
  15. NU-LOTAN [Concomitant]
     Active Substance: LOSARTAN POTASSIUM
     Route: 048
     Dates: start: 20100401, end: 20100505
  16. FLORID [Concomitant]
     Active Substance: MICONAZOLE
     Indication: ORAL CANDIDIASIS
     Route: 048
     Dates: start: 20091224, end: 20100120
  17. HUSTAZOL                           /00398403/ [Concomitant]
     Indication: NASOPHARYNGITIS
     Route: 048
     Dates: start: 20130110, end: 20130119
  18. AMLODIPINE                         /00972402/ [Concomitant]
     Active Substance: AMLODIPINE BESYLATE
     Indication: HYPERTENSION
     Route: 048
     Dates: start: 20130621, end: 20130919
  19. CRAVIT [Concomitant]
     Active Substance: LEVOFLOXACIN
     Indication: BRONCHITIS
     Route: 048
     Dates: start: 20130221, end: 20130227
  20. AIMIX [Concomitant]
     Active Substance: AMLODIPINE BESYLATE\IRBESARTAN
     Indication: HYPERTENSION
     Dosage: UNK, UNKNOWN FREQ.
     Route: 048
     Dates: start: 20130523, end: 20130620
  21. FEBURIC [Concomitant]
     Active Substance: FEBUXOSTAT
     Indication: HYPERURICAEMIA
     Route: 048
     Dates: start: 20130822, end: 20130919
  22. TACROLIMUS. [Suspect]
     Active Substance: TACROLIMUS
     Indication: LUPUS NEPHRITIS
     Route: 048
     Dates: start: 20090515, end: 20090923
  23. PREDONINE [Suspect]
     Active Substance: PREDNISOLONE\PREDNISOLONE ACETATE\PREDNISOLONE SODIUM SUCCINATE
     Route: 048
     Dates: start: 20120601, end: 20121227
  24. PERSANTIN [Suspect]
     Active Substance: DIPYRIDAMOLE
     Indication: PROPHYLAXIS
     Route: 048
     Dates: start: 20120629, end: 20120726
  25. BONALON [Concomitant]
     Active Substance: ALENDRONATE SODIUM
     Indication: PROPHYLAXIS
     Route: 048
  26. ITORAT [Concomitant]
     Indication: ONYCHOMYCOSIS
     Route: 048
     Dates: start: 20100603
  27. LENDORMIN [Concomitant]
     Active Substance: BROTIZOLAM
     Indication: INSOMNIA
     Dosage: 0.25 MG, ONCE DAILY
     Route: 048
     Dates: start: 20100729, end: 20100915
  28. ARTIST [Concomitant]
     Active Substance: CARVEDILOL
     Indication: PRODUCT USED FOR UNKNOWN INDICATION
     Route: 048
     Dates: start: 20110526, end: 20110928
  29. PL GRAN. [Concomitant]
     Active Substance: UNSPECIFIED INGREDIENT
     Indication: NASOPHARYNGITIS
     Route: 048
     Dates: start: 20130110, end: 20130119
  30. PL GRAN. [Concomitant]
     Active Substance: UNSPECIFIED INGREDIENT
     Route: 048
     Dates: start: 20131220, end: 20131224
  31. NEXIUM [Concomitant]
     Active Substance: ESOMEPRAZOLE MAGNESIUM
     Indication: ABDOMINAL PAIN UPPER
     Route: 048
     Dates: start: 20130509, end: 20130512
  32. PREDONINE [Suspect]
     Active Substance: PREDNISOLONE\PREDNISOLONE ACETATE\PREDNISOLONE SODIUM SUCCINATE
     Route: 048
     Dates: start: 20101209, end: 20120531
  33. PREDONINE [Suspect]
     Active Substance: PREDNISOLONE\PREDNISOLONE ACETATE\PREDNISOLONE SODIUM SUCCINATE
     Route: 048
     Dates: start: 20140317, end: 20140320
  34. VITAMINS NOS [Suspect]
     Active Substance: VITAMINS
     Indication: PROPHYLAXIS
     Route: 048
     Dates: start: 20120727, end: 20120823
  35. MYONAL                             /01071502/ [Concomitant]
     Indication: MUSCULOSKELETAL PAIN
     Route: 048
     Dates: start: 20111124, end: 20130320
  36. LOCHOL                             /01224502/ [Concomitant]
     Active Substance: FLUVASTATIN SODIUM
     Indication: HYPERLIPIDAEMIA
     Route: 048
     Dates: start: 20131122
  37. GASLON N [Concomitant]
     Indication: LUPUS ENTERITIS
     Route: 048
     Dates: start: 20140317, end: 20140403
  38. TACROLIMUS. [Suspect]
     Active Substance: TACROLIMUS
     Route: 048
     Dates: start: 20090924, end: 20130221
  39. TACROLIMUS. [Suspect]
     Active Substance: TACROLIMUS
     Route: 048
     Dates: start: 20130222, end: 20130418
  40. TACROLIMUS. [Suspect]
     Active Substance: TACROLIMUS
     Route: 048
     Dates: start: 20130419
  41. PREDONINE [Suspect]
     Active Substance: PREDNISOLONE\PREDNISOLONE ACETATE\PREDNISOLONE SODIUM SUCCINATE
     Route: 048
     Dates: start: 20121228, end: 20140316
  42. PRAVASTATIN [Suspect]
     Active Substance: PRAVASTATIN\PRAVASTATIN SODIUM
     Indication: PRODUCT USED FOR UNKNOWN INDICATION
     Route: 048
     Dates: start: 20091224, end: 20100602
  43. NU-LOTAN [Concomitant]
     Active Substance: LOSARTAN POTASSIUM
     Indication: PRODUCT USED FOR UNKNOWN INDICATION
     Route: 048
     Dates: end: 20100331
  44. MEILAX [Concomitant]
     Active Substance: ETHYL LOFLAZEPATE
     Indication: PROPHYLAXIS
     Route: 048
     Dates: end: 20100602
  45. CONIEL [Concomitant]
     Active Substance: BENIDIPINE HYDROCHLORIDE
     Indication: PRODUCT USED FOR UNKNOWN INDICATION
     Route: 048
     Dates: start: 20111222, end: 20130123
  46. AMLODIPINE                         /00972402/ [Concomitant]
     Active Substance: AMLODIPINE BESYLATE
     Dosage: 5.0 MG, ONCE DAILY
     Route: 048
     Dates: start: 20130920
  47. EMPYNASE P [Concomitant]
     Active Substance: PROTEIN
     Indication: BRONCHITIS
     Route: 048
     Dates: start: 20130221, end: 20130227
  48. SOLANTAL [Concomitant]
     Active Substance: TIARAMIDE
     Indication: NASOPHARYNGITIS
     Route: 048
     Dates: start: 20130110, end: 20130119
  49. PREDONINE [Suspect]
     Active Substance: PREDNISOLONE\PREDNISOLONE ACETATE\PREDNISOLONE SODIUM SUCCINATE
     Route: 048
     Dates: start: 20140509
  50. PRAVASTATIN [Suspect]
     Active Substance: PRAVASTATIN\PRAVASTATIN SODIUM
     Route: 048
     Dates: start: 20100603, end: 20130321
  51. PRAVASTATIN [Suspect]
     Active Substance: PRAVASTATIN\PRAVASTATIN SODIUM
     Route: 048
     Dates: start: 20131018, end: 20131121
  52. ADALAT CC [Suspect]
     Active Substance: NIFEDIPINE
     Indication: HYPERTENSION
     Route: 048
     Dates: start: 20130124, end: 20130220
  53. LIPOVAS [Concomitant]
     Active Substance: PRAVASTATIN SODIUM
     Indication: PRODUCT USED FOR UNKNOWN INDICATION
     Route: 048
     Dates: end: 20091223
  54. NATRIX [Concomitant]
     Active Substance: INDAPAMIDE
     Indication: PRODUCT USED FOR UNKNOWN INDICATION
     Route: 048
     Dates: start: 20111222
  55. BAYASPIRIN [Suspect]
     Active Substance: ASPIRIN
     Indication: PROPHYLAXIS
     Route: 048
     Dates: start: 20100506, end: 20120628
  56. VITAMINS NOS [Suspect]
     Active Substance: VITAMINS
     Route: 048
     Dates: start: 20121116, end: 20140508
  57. IRBETAN [Concomitant]
     Active Substance: IRBESARTAN
     Indication: PRODUCT USED FOR UNKNOWN INDICATION
     Route: 048
     Dates: start: 20100506, end: 20130522
  58. VENA                               /00000402/ [Concomitant]
     Indication: NASOPHARYNGITIS
     Route: 048
     Dates: start: 20130110, end: 20130119
  59. EMPYNASE P [Concomitant]
     Active Substance: PROTEIN
     Indication: NASOPHARYNGITIS
     Route: 048
     Dates: start: 20130110, end: 20130119
  60. NAUZELIN [Concomitant]
     Active Substance: DOMPERIDONE
     Indication: GASTROENTERITIS
     Route: 048
     Dates: start: 20121115, end: 20121119
  61. PARIET [Concomitant]
     Active Substance: RABEPRAZOLE SODIUM
     Indication: PROPHYLAXIS
     Route: 048
     Dates: start: 20140320
  62. HYPEN                              /00613801/ [Concomitant]
     Active Substance: ETODOLAC
     Indication: LUPUS ENTERITIS
     Route: 048
     Dates: start: 20140316, end: 20140317
  63. NERIPROCT [Concomitant]
     Indication: LUPUS ENTERITIS
     Dosage: UNK UNK, UNKNOWN FREQ.
     Route: 054
     Dates: start: 20140321, end: 20140403
  64. DIART [Suspect]
     Active Substance: AZOSEMIDE
     Route: 048
     Dates: start: 20130719
  65. CELECOX [Concomitant]
     Active Substance: CELECOXIB
     Indication: MUSCULOSKELETAL PAIN
     Route: 048
     Dates: start: 20100506, end: 20130522
  66. CELECOX [Concomitant]
     Active Substance: CELECOXIB
     Route: 048
     Dates: start: 20130523, end: 20140508
  67. AMLODIPINE                         /00972402/ [Concomitant]
     Active Substance: AMLODIPINE BESYLATE
     Indication: HYPOTENSION
     Route: 048
     Dates: start: 20130221, end: 20130522
  68. PL GRAN. [Concomitant]
     Active Substance: UNSPECIFIED INGREDIENT
     Indication: BRONCHITIS
     Route: 048
     Dates: start: 20130221, end: 20130227
  69. SOLANTAL [Concomitant]
     Active Substance: TIARAMIDE
     Indication: BRONCHITIS
     Route: 048
     Dates: start: 20130221, end: 20130227
  70. LAC-B [Concomitant]
     Active Substance: BIFIDOBACTERIUM SPP.
     Indication: GASTROENTERITIS
     Route: 048
     Dates: start: 20121115, end: 20121119

REACTIONS (25)
  - Myalgia [Recovered/Resolved]
  - Nasopharyngitis [Recovering/Resolving]
  - Hypotension [Recovering/Resolving]
  - Hypotension [Recovering/Resolving]
  - Neuropathy peripheral [Recovered/Resolved]
  - Lupus enteritis [Not Recovered/Not Resolved]
  - Oral candidiasis [Recovered/Resolved]
  - Nephropathy [Not Recovered/Not Resolved]
  - Cardiolipin antibody positive [Not Recovered/Not Resolved]
  - Musculoskeletal pain [Recovering/Resolving]
  - Onychomycosis [Not Recovered/Not Resolved]
  - Abdominal pain upper [Recovered/Resolved]
  - Angina pectoris [Recovering/Resolving]
  - Oedema peripheral [Not Recovered/Not Resolved]
  - Proteinuria [Not Recovered/Not Resolved]
  - Haemorrhage subcutaneous [Recovered/Resolved]
  - Menopausal symptoms [Recovering/Resolving]
  - Hypertension [Recovering/Resolving]
  - Hyperlipidaemia [Recovering/Resolving]
  - Bronchitis [Recovering/Resolving]
  - Hypertension [Recovering/Resolving]
  - Headache [Recovered/Resolved]
  - Insomnia [Recovering/Resolving]
  - Gastroenteritis [Recovered/Resolved]
  - Hyperuricaemia [Not Recovered/Not Resolved]

NARRATIVE: CASE EVENT DATE: 20091220
